FAERS Safety Report 8343416-3 (Version None)
Quarter: 2012Q2

REPORT INFORMATION
  Report Type: 
  Country: None (occurrence: None)
  Receive Date: 20120508
  Receipt Date: 20100510
  Transmission Date: 20120825
  Serious: No
  Sender: FDA-Public Use
  Company Number: US-TEVA-2010002362

PATIENT
  Sex: Female
  Weight: 91.254 kg

DRUGS (8)
  1. TREANDA [Suspect]
     Route: 042
     Dates: start: 20100428
  2. RITUXAN [Concomitant]
  3. TREANDA [Suspect]
     Route: 042
     Dates: start: 20100325
  4. LEVOTHYROXINE SODIUM [Concomitant]
     Indication: THYROIDECTOMY
  5. AMLODIPINE [Concomitant]
     Indication: HYPERTENSION
  6. TREANDA [Suspect]
     Indication: CHRONIC LYMPHOCYTIC LEUKAEMIA
     Route: 042
     Dates: start: 20091215
  7. TREANDA [Suspect]
     Route: 042
     Dates: start: 20100114
  8. TREANDA [Suspect]
     Route: 042
     Dates: start: 20100218

REACTIONS (2)
  - ALANINE AMINOTRANSFERASE INCREASED [None]
  - ASPARTATE AMINOTRANSFERASE INCREASED [None]
